FAERS Safety Report 21486200 (Version 6)
Quarter: 2023Q4

REPORT INFORMATION
  Report Type: Report from Study
  Country: US (occurrence: US)
  Receive Date: 20221020
  Receipt Date: 20231211
  Transmission Date: 20240109
  Serious: Yes (Hospitalization, Other)
  Sender: FDA-Public Use
  Company Number: US-UCBSA-2022060746

PATIENT
  Sex: Female

DRUGS (5)
  1. ROTIGOTINE [Suspect]
     Active Substance: ROTIGOTINE
     Indication: Parkinson^s disease
     Dosage: 8 MILLIGRAM, ONCE DAILY (QD)
     Route: 062
  2. ROTIGOTINE [Suspect]
     Active Substance: ROTIGOTINE
     Indication: Restless legs syndrome
     Dosage: STARTED CUTTING 8MG PATCHES IN HALF TO LOWER THE DOSE
     Route: 062
     Dates: start: 2022
  3. ROTIGOTINE [Suspect]
     Active Substance: ROTIGOTINE
     Dosage: 6 MILLIGRAM ONCE DAILY (QD)
     Route: 062
     Dates: start: 20230510
  4. ROTIGOTINE [Suspect]
     Active Substance: ROTIGOTINE
     Dosage: 4 MILLIGRAM, ONCE DAILY (QD)
     Route: 062
  5. PANTOPRAZOLE [Concomitant]
     Active Substance: PANTOPRAZOLE
     Indication: Gastrooesophageal reflux disease
     Dosage: UNK

REACTIONS (22)
  - Choking [Not Recovered/Not Resolved]
  - Loss of consciousness [Recovered/Resolved]
  - Femur fracture [Not Recovered/Not Resolved]
  - Thrombosis [Not Recovered/Not Resolved]
  - Sudden onset of sleep [Unknown]
  - Transient ischaemic attack [Unknown]
  - Dizziness [Not Recovered/Not Resolved]
  - Fatigue [Not Recovered/Not Resolved]
  - Feeling abnormal [Not Recovered/Not Resolved]
  - Gastrooesophageal reflux disease [Not Recovered/Not Resolved]
  - Tachycardia [Unknown]
  - Orthostatic hypotension [Unknown]
  - Somnolence [Unknown]
  - Application site pain [Unknown]
  - Tremor [Unknown]
  - Malaise [Unknown]
  - Gait disturbance [Unknown]
  - Fall [Not Recovered/Not Resolved]
  - Drug ineffective [Unknown]
  - Product use issue [Unknown]
  - Overdose [Unknown]
  - Wrong technique in product usage process [Unknown]

NARRATIVE: CASE EVENT DATE: 20220101
